FAERS Safety Report 20655450 (Version 1)
Quarter: 2022Q1

REPORT INFORMATION
  Report Type: Spontaneous
  Country: US (occurrence: US)
  Receive Date: 20220330
  Receipt Date: 20220330
  Transmission Date: 20220423
  Serious: No
  Sender: FDA-Public Use
  Company Number: US-PFIZER INC-2021868722

PATIENT
  Age: 61 Year

DRUGS (1)
  1. PREMARIN [Suspect]
     Active Substance: ESTROGENS, CONJUGATED
     Indication: Hormone replacement therapy
     Dosage: TAKE IT EVERY DAY

REACTIONS (3)
  - Weight increased [Unknown]
  - Insomnia [Unknown]
  - Anxiety [Unknown]
